FAERS Safety Report 18010137 (Version 1)
Quarter: 2020Q3

REPORT INFORMATION
  Report Type: Spontaneous
  Country: GB (occurrence: GB)
  Receive Date: 20200711
  Receipt Date: 20200711
  Transmission Date: 20201103
  Serious: Yes (Other)
  Sender: FDA-Public Use
  Company Number: GB-DRREDDYS-GER/UKI/20/0124821

PATIENT
  Age: 20 Year
  Sex: Male

DRUGS (1)
  1. FLUOXETINE [Suspect]
     Active Substance: FLUOXETINE HYDROCHLORIDE
     Indication: PRODUCT USED FOR UNKNOWN INDICATION
     Route: 048
     Dates: start: 20200601, end: 20200604

REACTIONS (3)
  - Suicidal ideation [Unknown]
  - Self-injurious ideation [Unknown]
  - Agitation [Unknown]

NARRATIVE: CASE EVENT DATE: 20200602
